FAERS Safety Report 7568071-1 (Version None)
Quarter: 2011Q2

REPORT INFORMATION
  Report Type: 
  Country: None (occurrence: None)
  Receive Date: 20110623
  Receipt Date: 20110610
  Transmission Date: 20111010
  Serious: Yes (Death)
  Sender: FDA-Public Use
  Company Number: US-KINGPHARMUSA00001-K201000989

PATIENT
  Sex: Female
  Weight: 65 kg

DRUGS (25)
  1. PIPERACILLIN AND TAZOBACTAM [Concomitant]
     Dosage: UNK
     Dates: start: 20100714, end: 20100722
  2. ACYCLOVIR [Concomitant]
     Dosage: UNK
     Dates: start: 20100715
  3. VITAMIN K TAB [Concomitant]
     Dosage: UNK
     Dates: start: 20100714
  4. GLYBURIDE [Concomitant]
     Dosage: UNK
     Dates: start: 20100714
  5. METRONIDAZOLE [Concomitant]
     Dosage: UNK
     Dates: start: 20100714
  6. POTASSIUM CHLORIDE [Concomitant]
     Dosage: 4 G, SINGLE
     Route: 042
     Dates: start: 20100722, end: 20100722
  7. FLUCONAZOLE [Concomitant]
     Indication: PROPHYLAXIS
     Dosage: 200 MG, BID
     Dates: start: 20100714, end: 20100721
  8. FUROSEMIDE [Concomitant]
     Indication: PULMONARY OEDEMA
     Dosage: 100 MG, TWICE ON 19JUL2010
     Route: 042
     Dates: start: 20100719, end: 20100719
  9. ACETAMINOPHEN [Concomitant]
     Dosage: UNK
     Dates: start: 20100714
  10. PRAVASTATIN [Concomitant]
     Dosage: 20 MG, QD
     Route: 048
     Dates: start: 20021212, end: 20100718
  11. VORICONAZOLE [Suspect]
     Dosage: 200 MG, BID
     Route: 042
     Dates: start: 20100719, end: 20100720
  12. METHYLPREDNISOLONE [Concomitant]
     Indication: PULMONARY OEDEMA
     Dosage: 60 MG, QD
     Route: 042
     Dates: start: 20100719, end: 20100719
  13. AMIKACIN [Concomitant]
     Indication: PYREXIA
     Dosage: 1 G, QD
     Dates: start: 20100714, end: 20100719
  14. POTASSIUM CHLORIDE [Concomitant]
     Indication: HYPOKALAEMIA
     Dosage: 4 G, UNK
     Route: 042
     Dates: start: 20100714, end: 20100722
  15. POTASSIUM CHLORIDE [Concomitant]
     Dosage: 5 G, SINGLE
     Route: 042
     Dates: start: 20100721, end: 20100721
  16. ESOMEPRAZOLE MAGNESIUM [Concomitant]
     Indication: GASTRITIS
     Dosage: 40 MG, QD
     Route: 048
     Dates: start: 20100708, end: 20100717
  17. ANIDULAFUNGIN [Suspect]
     Indication: BRONCHOPULMONARY ASPERGILLOSIS
     Dosage: 100 MG, QD
     Route: 042
     Dates: start: 20100721, end: 20100722
  18. VORICONAZOLE [Suspect]
     Indication: BRONCHOPULMONARY ASPERGILLOSIS
     Dosage: 360 MG, BID
     Route: 042
     Dates: start: 20100718, end: 20100718
  19. VORICONAZOLE [Suspect]
     Dosage: 260 MG, QD
     Route: 042
     Dates: start: 20100721, end: 20100722
  20. SODIUM CHLORIDE [Concomitant]
     Indication: HYPONATRAEMIA
     Dosage: 8 G, UNK
     Route: 042
     Dates: start: 20100714
  21. CORGARD [Suspect]
     Indication: HYPERTENSION
     Dosage: 80 MG, BID
     Route: 048
     Dates: start: 20070101
  22. VANCOMYCIN [Concomitant]
     Dosage: UNK
     Dates: start: 20100714
  23. IRBESARTAN + HYDROCHLOROTHIAZIDE [Suspect]
     Dosage: UNK
     Dates: start: 20100714
  24. INSULIN [Concomitant]
     Indication: DIABETES MELLITUS
     Dosage: 10 IU, PRN
     Route: 058
     Dates: start: 20100714
  25. PICLOXYDINE [Concomitant]
     Indication: CONJUNCTIVITIS
     Dosage: 3 DF, SINGLE
     Route: 061
     Dates: start: 20100718, end: 20100718

REACTIONS (3)
  - BRADYCARDIA [None]
  - HYPOTENSION [None]
  - HYPERKALAEMIA [None]
